FAERS Safety Report 14567411 (Version 3)
Quarter: 2019Q2

REPORT INFORMATION
  Report Type: Spontaneous
  Country: FR (occurrence: FR)
  Receive Date: 20180223
  Receipt Date: 20190502
  Transmission Date: 20190711
  Serious: Yes (Life-Threatening, Hospitalization, Other)
  Sender: FDA-Public Use
  Company Number: FR-MYLANLABS-2018M1012027

PATIENT
  Age: 29 Year
  Sex: Male

DRUGS (5)
  1. DIAZEPAM. [Suspect]
     Active Substance: DIAZEPAM
     Indication: PRODUCT USED FOR UNKNOWN INDICATION
     Dosage: UNK
     Route: 048
  2. CAFFEINE. [Suspect]
     Active Substance: CAFFEINE
     Indication: DIZZINESS
     Dosage: 6 GRAM, TOTAL,TOOK DOZENS OF CAFFEINE TABLETS
     Route: 048
  3. NORDAZEPAM [Concomitant]
     Active Substance: NORDAZEPAM
     Indication: PRODUCT USED FOR UNKNOWN INDICATION
  4. PANTOPRAZOLE [Concomitant]
     Active Substance: PANTOPRAZOLE
     Indication: PRODUCT USED FOR UNKNOWN INDICATION
     Dosage: UNK
     Route: 065
  5. LANSOPRAZOLE. [Concomitant]
     Active Substance: LANSOPRAZOLE
     Indication: PRODUCT USED FOR UNKNOWN INDICATION
     Dosage: UNK
     Route: 065

REACTIONS (13)
  - Hyperlactacidaemia [Recovered/Resolved]
  - Intentional overdose [Recovered/Resolved]
  - Hyperhidrosis [Unknown]
  - Hypokalaemia [Recovered/Resolved]
  - Mydriasis [Unknown]
  - Agitation [Unknown]
  - Dizziness [Unknown]
  - Toxicity to various agents [Recovered/Resolved]
  - Intentional product misuse [Recovered/Resolved]
  - Sinus tachycardia [Recovered/Resolved]
  - Vomiting [Unknown]
  - Tremor [Unknown]
  - Drug abuse [Unknown]
